FAERS Safety Report 7633747-4 (Version None)
Quarter: 2011Q3

REPORT INFORMATION
  Report Type: 
  Country: None (occurrence: None)
  Receive Date: 20110725
  Receipt Date: 20110722
  Transmission Date: 20111222
  Serious: Yes (Hospitalization)
  Sender: FDA-Public Use
  Company Number: US-ROXANE LABORATORIES, INC.-2011-RO-01054RO

PATIENT
  Sex: Male

DRUGS (2)
  1. OXYMORPHONE HYDROCHLORIDE [Suspect]
     Dates: start: 20101208
  2. OXYMORPHONE HYDROCHLORIDE [Suspect]
     Dates: start: 20110423

REACTIONS (1)
  - CHRONIC OBSTRUCTIVE PULMONARY DISEASE [None]
